FAERS Safety Report 8272168-0 (Version None)
Quarter: 2012Q2

REPORT INFORMATION
  Report Type: 
  Country: None (occurrence: None)
  Receive Date: 20120410
  Receipt Date: 20120403
  Transmission Date: 20120825
  Serious: Yes (Other)
  Sender: FDA-Public Use
  Company Number: DE-JNJFOC-20120401115

PATIENT
  Sex: Male
  Weight: 82 kg

DRUGS (5)
  1. XARELTO [Suspect]
     Indication: ATRIAL FIBRILLATION
     Route: 048
     Dates: start: 20120402
  2. EXFORGE [Concomitant]
  3. ALLOPURINOL [Concomitant]
  4. DIGOXIN [Concomitant]
  5. INSULIN INSULATARD HUMAN [Concomitant]

REACTIONS (2)
  - DISORIENTATION [None]
  - DISTURBANCE IN ATTENTION [None]
